FAERS Safety Report 13828184 (Version 3)
Quarter: 2017Q3

REPORT INFORMATION
  Report Type: Report from Study
  Country: US (occurrence: US)
  Receive Date: 20170803
  Receipt Date: 20170919
  Transmission Date: 20171127
  Serious: No
  Sender: FDA-Public Use
  Company Number: PHEH2017US023784

PATIENT
  Sex: Female

DRUGS (1)
  1. COSENTYX [Suspect]
     Active Substance: SECUKINUMAB
     Indication: PRODUCT USED FOR UNKNOWN INDICATION
     Dosage: 150 MG, QMO
     Route: 058

REACTIONS (6)
  - Oral mucosal blistering [Unknown]
  - Peripheral swelling [Recovering/Resolving]
  - Tooth disorder [Unknown]
  - Stomatitis [Recovering/Resolving]
  - Dactylitis [Unknown]
  - Gingival blister [Unknown]
